FAERS Safety Report 4595679-8 (Version None)
Quarter: 2005Q1

REPORT INFORMATION
  Report Type: 
  Country: None (occurrence: None)
  Receive Date: 20050224
  Receipt Date: 20050208
  Transmission Date: 20050727
  Serious: No
  Sender: FDA-Public Use
  Company Number: 10235

PATIENT
  Age: 66 Year
  Sex: Female

DRUGS (20)
  1. AMIODARONE [Suspect]
     Indication: VENTRICULAR FIBRILLATION
     Dosage: 200 MG  ONCE, IV
     Route: 042
  2. ESTADIOL [Concomitant]
  3. NORETHINDRONE ACETATE [Concomitant]
  4. AMILORIDE [Concomitant]
  5. HYDROCHLOROTHIAZIDE [Concomitant]
  6. PRAVASTATIN [Concomitant]
  7. DIGOXIN [Concomitant]
  8. FUROSEMIDE [Concomitant]
  9. PHENPROCOUMON [Concomitant]
  10. METOPROLOL [Concomitant]
  11. MIDAZOLAM [Concomitant]
  12. INSULIN [Concomitant]
  13. HEPARIN [Concomitant]
  14. ACETYLCYSTEINE [Concomitant]
  15. SUCRALFATE [Concomitant]
  16. APROTININ [Concomitant]
  17. MORPHINE [Concomitant]
  18. ACETAMINOPHEN [Concomitant]
  19. PROPOFOL [Concomitant]
  20. AMIODARONE [Concomitant]

REACTIONS (6)
  - BRADYCARDIA [None]
  - DEPRESSED LEVEL OF CONSCIOUSNESS [None]
  - HEART RATE INCREASED [None]
  - HEPATOCELLULAR DAMAGE [None]
  - HEPATOTOXICITY [None]
  - POST PROCEDURAL COMPLICATION [None]
